FAERS Safety Report 5401392-7 (Version None)
Quarter: 2007Q3

REPORT INFORMATION
  Report Type: 
  Country: None (occurrence: None)
  Receive Date: 20070726
  Receipt Date: 20070710
  Transmission Date: 20080115
  Serious: Yes (Other)
  Sender: FDA-Public Use
  Company Number: 2007JP003018

PATIENT
  Age: 52 Year
  Sex: Male
  Weight: 70.5 kg

DRUGS (8)
  1. PROGRAF [Suspect]
     Indication: MYASTHENIA GRAVIS
     Dosage: 3 MG; 2 MG
     Dates: start: 20030901
  2. PREDNISOLONE [Concomitant]
  3. SULFASALAZINE [Concomitant]
  4. MESALAMINE [Concomitant]
  5. MESALAZINE (MESALAZINE) SUPPOSITORY [Concomitant]
  6. CEFOPERAZONE SODIUM/SULBACTAM SODIUM (CEFOPERAZONE SODIUM, SULBACTAM S [Concomitant]
  7. SOLUTIONS FOR PARENTERAL NUTRITION INJECTION [Concomitant]
  8. SULTAMICILLIN (SULTAMICILLIN) INJECTION [Concomitant]

REACTIONS (3)
  - COLITIS ULCERATIVE [None]
  - DIABETES MELLITUS [None]
  - ERYSIPELAS [None]
